FAERS Safety Report 25012944 (Version 1)
Quarter: 2025Q1

REPORT INFORMATION
  Report Type: Report from Study
  Country: US (occurrence: US)
  Receive Date: 20250226
  Receipt Date: 20250226
  Transmission Date: 20250409
  Serious: Yes (Hospitalization)
  Sender: TEVA
  Company Number: US-TEVA-VS-3301132

PATIENT
  Age: 45 Year
  Sex: Female

DRUGS (1)
  1. IMATINIB [Suspect]
     Active Substance: IMATINIB
     Indication: Product used for unknown indication
     Route: 065

REACTIONS (2)
  - Acute hepatic failure [Recovered/Resolved]
  - Hepatic encephalopathy [Recovered/Resolved]
